FAERS Safety Report 24280478 (Version 1)
Quarter: 2024Q3

REPORT INFORMATION
  Report Type: Spontaneous
  Country: IR (occurrence: IR)
  Receive Date: 20240904
  Receipt Date: 20240904
  Transmission Date: 20241017
  Serious: Yes (Death, Other)
  Sender: RANBAXY
  Company Number: IR-SUN PHARMACEUTICAL INDUSTRIES LTD-2024R1-465414

PATIENT
  Age: 33 Year
  Sex: Female

DRUGS (2)
  1. PAZOPANIB [Suspect]
     Active Substance: PAZOPANIB
     Indication: Angiosarcoma
     Dosage: 200 MILLIGRAM
     Route: 065
  2. PACLITAXEL [Suspect]
     Active Substance: PACLITAXEL
     Indication: Angiosarcoma
     Dosage: 120 MILLIGRAM/SQ. METER
     Route: 042

REACTIONS (2)
  - Condition aggravated [Fatal]
  - Infection [Fatal]
